FAERS Safety Report 5195958-X (Version None)
Quarter: 2007Q1

REPORT INFORMATION
  Report Type: 
  Country: None (occurrence: None)
  Receive Date: 20070102
  Receipt Date: 20061218
  Transmission Date: 20070707
  Serious: Yes (Hospitalization)
  Sender: FDA-Public Use
  Company Number: US-ROCHE-475980

PATIENT
  Age: 34 Year
  Sex: Female

DRUGS (2)
  1. PEG-INTERFERON A-2A (RO 25-8310) [Suspect]
     Indication: HEPATITIS C
     Route: 058
     Dates: start: 20060517
  2. RIBAVIRIN [Suspect]
     Indication: HEPATITIS C
     Dosage: 200MG QAM, 400MG QPM
     Route: 048
     Dates: start: 20060517

REACTIONS (3)
  - ASTHMA [None]
  - BLOOD GLUCOSE INCREASED [None]
  - CONDITION AGGRAVATED [None]
